FAERS Safety Report 5724366-5 (Version None)
Quarter: 2008Q2

REPORT INFORMATION
  Report Type: 
  Country: None (occurrence: None)
  Receive Date: 20080428
  Receipt Date: 20080410
  Transmission Date: 20081010
  Serious: Yes (Death)
  Sender: FDA-Public Use
  Company Number: 2008AL002447

PATIENT
  Age: 66 Year
  Sex: Female

DRUGS (6)
  1. MIRTAZAPINE TABLETS 45 MG (AMIDE) (MIRTAZAPINE TABLETS 45 MG (AMIDE)) [Suspect]
     Indication: INTENTIONAL OVERDOSE
  2. DILTIAZEM HYDROCHLORIDE [Suspect]
     Indication: INTENTIONAL OVERDOSE
  3. ANADIN EXTRA [Concomitant]
  4. AMITRIPTYLINE HCL [Concomitant]
  5. ACETYLSALICYLIC ACID SRT [Concomitant]
  6. ZOPICLONE [Concomitant]

REACTIONS (4)
  - COMPLETED SUICIDE [None]
  - HEPATIC STEATOSIS [None]
  - MULTIPLE DRUG OVERDOSE [None]
  - PULMONARY OEDEMA [None]
